FAERS Safety Report 5604325-3 (Version None)
Quarter: 2008Q1

REPORT INFORMATION
  Report Type: 
  Country: None (occurrence: None)
  Receive Date: 20080128
  Receipt Date: 20080123
  Transmission Date: 20080703
  Serious: Yes (Hospitalization)
  Sender: FDA-Public Use
  Company Number: B0494121A

PATIENT
  Age: 32 Year
  Sex: Female
  Weight: 91 kg

DRUGS (4)
  1. LAMICTAL [Suspect]
     Indication: EPILEPSY
     Route: 048
     Dates: start: 20070228
  2. GABAPENTIN [Suspect]
     Indication: EPILEPSY
     Route: 048
     Dates: start: 20071003
  3. TEGRETOL [Concomitant]
     Indication: EPILEPSY
     Route: 048
  4. DEPAKENE [Concomitant]
     Indication: EPILEPSY
     Route: 048

REACTIONS (5)
  - CHRONIC SINUSITIS [None]
  - CONVULSION [None]
  - DRUG INEFFECTIVE [None]
  - INFECTION [None]
  - NASOPHARYNGITIS [None]
